FAERS Safety Report 6671012-2 (Version None)
Quarter: 2010Q2

REPORT INFORMATION
  Report Type: 
  Country: None (occurrence: None)
  Receive Date: 20100407
  Receipt Date: 20100329
  Transmission Date: 20101027
  Serious: Yes (Hospitalization)
  Sender: FDA-Public Use
  Company Number: PHHY2010HR20047

PATIENT
  Age: 66 Year
  Sex: Female

DRUGS (2)
  1. FLUVASTATIN SODIUM [Suspect]
     Indication: DYSLIPIDAEMIA
     Dosage: 80 MG PER DAY
  2. RAPAMYCIN [Interacting]

REACTIONS (6)
  - DIARRHOEA [None]
  - DRUG INTERACTION [None]
  - ESCHERICHIA SEPSIS [None]
  - PYREXIA [None]
  - RENAL FAILURE ACUTE [None]
  - RHABDOMYOLYSIS [None]
